FAERS Safety Report 9485863 (Version 2)
Quarter: 2013Q3

REPORT INFORMATION
  Report Type: Report from Study
  Country: IL (occurrence: IL)
  Receive Date: 20130829
  Receipt Date: 20130829
  Transmission Date: 20140515
  Serious: Yes (Death, Hospitalization)
  Sender: FDA-Public Use
  Company Number: PHHY2013IL033884

PATIENT
  Age: 53 Year
  Sex: Male

DRUGS (1)
  1. TASIGNA [Suspect]
     Indication: CHRONIC MYELOID LEUKAEMIA
     Dosage: 800 MG, DAILY
     Route: 048
     Dates: start: 201303

REACTIONS (6)
  - Transplant rejection [Fatal]
  - White blood cell count increased [Unknown]
  - Pain in extremity [Unknown]
  - Pyrexia [Unknown]
  - Oral disorder [Not Recovered/Not Resolved]
  - Throat lesion [Not Recovered/Not Resolved]
